FAERS Safety Report 5302939-1 (Version None)
Quarter: 2007Q2

REPORT INFORMATION
  Report Type: 
  Country: None (occurrence: None)
  Receive Date: 20070420
  Receipt Date: 20070410
  Transmission Date: 20071010
  Serious: Yes (Other)
  Sender: FDA-Public Use
  Company Number: HQWYE308211APR07

PATIENT
  Sex: Female

DRUGS (3)
  1. EFFEXOR XR [Suspect]
     Dosage: DOSE AND FREQUENCY UNSPECIFIED
     Route: 048
  2. LITHIUM CARBONATE [Suspect]
     Dosage: DOSE AND FREQUENCY UNSPECIFIED
  3. QUETIAPINE FUMARATE [Concomitant]
     Dosage: DOSE AND FREQUENCY UNSPECIFIED

REACTIONS (2)
  - BENIGN INTRACRANIAL HYPERTENSION [None]
  - HEADACHE [None]
